FAERS Safety Report 16060668 (Version 10)
Quarter: 2020Q2

REPORT INFORMATION
  Report Type: Spontaneous
  Country: JP (occurrence: JP)
  Receive Date: 20190312
  Receipt Date: 20200427
  Transmission Date: 20200713
  Serious: Yes (Hospitalization, Other)
  Sender: FDA-Public Use
  Company Number: JP-UNITED THERAPEUTICS-UNT-2016-017777

PATIENT
  Age: 20 Year
  Sex: Female
  Weight: 44.5 kg

DRUGS (30)
  1. REMODULIN [Suspect]
     Active Substance: TREPROSTINIL
     Dosage: 7 MCL/HR, CONTINUING
     Route: 058
  2. REMODULIN [Suspect]
     Active Substance: TREPROSTINIL
     Dosage: 0.018 ?G/KG, CONTINUING
     Route: 058
     Dates: end: 20170822
  3. REMODULIN [Suspect]
     Active Substance: TREPROSTINIL
     Dosage: UNK UNK, CONTINUING
     Route: 058
     Dates: start: 20170825, end: 20190221
  4. TRAMCET [Concomitant]
     Active Substance: ACETAMINOPHEN\TRAMADOL
     Indication: PROPHYLAXIS
     Dosage: 4 DF, QD
     Route: 048
     Dates: start: 20161126
  5. ACETAMINOPHEN. [Concomitant]
     Active Substance: ACETAMINOPHEN
     Indication: PRODUCT USED FOR UNKNOWN INDICATION
     Dosage: UNK
     Route: 048
     Dates: start: 20161120, end: 20161125
  6. REMODULIN [Suspect]
     Active Substance: TREPROSTINIL
     Indication: PULMONARY ARTERIAL HYPERTENSION
     Dosage: 0.0084 ?G/KG, CONTINUING
     Route: 058
     Dates: start: 20161109
  7. REMODULIN [Suspect]
     Active Substance: TREPROSTINIL
     Dosage: 0.0047?G/KG, CONTINUING
     Route: 058
  8. RILMAZAFONE HYDROCHLORIDE [Concomitant]
     Active Substance: RILMAZAFONE HYDROCHLORIDE
     Indication: PROPHYLAXIS
     Dosage: UNK
     Route: 048
     Dates: start: 20170215, end: 20170219
  9. REMODULIN [Suspect]
     Active Substance: TREPROSTINIL
     Dosage: 0.0084 ?G/KG, CONTINUING
     Route: 058
  10. NAUZELIN [Concomitant]
     Active Substance: DOMPERIDONE
     Indication: PROPHYLAXIS
     Dosage: 10 MG, PER DAY
     Route: 048
     Dates: start: 20170608, end: 20170713
  11. REMODULIN [Suspect]
     Active Substance: TREPROSTINIL
     Dosage: 0.030 ?G/KG, CONTINUING
     Route: 058
  12. REMODULIN [Suspect]
     Active Substance: TREPROSTINIL
     Dosage: 0.0116 ?G/KG, CONTINUING
     Route: 058
  13. REMODULIN [Suspect]
     Active Substance: TREPROSTINIL
     Dosage: 0.03 ?G/KG, CONTINUING
     Route: 058
  14. REMODULIN [Suspect]
     Active Substance: TREPROSTINIL
     Dosage: 0.032 ?G/KG, CONTINUING
     Route: 058
  15. REMODULIN [Suspect]
     Active Substance: TREPROSTINIL
     Dosage: UNK, CONTINUING
     Route: 041
     Dates: start: 20190221, end: 20190307
  16. RINDERON V [Concomitant]
     Active Substance: BETAMETHASONE VALERATE
     Indication: PROPHYLAXIS
     Dosage: UNK
     Route: 062
     Dates: start: 20171026, end: 20171130
  17. REMODULIN [Suspect]
     Active Substance: TREPROSTINIL
     Dosage: 0.0104 ?G/KG, CONTINUING
     Route: 058
  18. REMODULIN [Suspect]
     Active Substance: TREPROSTINIL
     Dosage: 0.0116 ?G/KG, CONTINUING
     Route: 058
  19. REMODULIN [Suspect]
     Active Substance: TREPROSTINIL
     Dosage: 0.0104 ?G/KG, CONTINUING
     Route: 058
  20. REMODULIN [Suspect]
     Active Substance: TREPROSTINIL
     Dosage: 0.0114 ?G/KG, CONTINUING
     Route: 058
  21. REMODULIN [Suspect]
     Active Substance: TREPROSTINIL
     Dosage: UNK, CONTINUING
     Route: 058
     Dates: start: 20190307, end: 20191111
  22. CALONAL [Concomitant]
     Active Substance: ACETAMINOPHEN
     Indication: PROPHYLAXIS
     Dosage: 800 MG, PER DAY
     Route: 048
     Dates: start: 20170608, end: 20170613
  23. REMODULIN [Suspect]
     Active Substance: TREPROSTINIL
     Dosage: 0.0133 ?G/KG, CONTINUING
     Route: 058
  24. REMODULIN [Suspect]
     Active Substance: TREPROSTINIL
     Dosage: 0.038 ?G/KG, CONTINUING
     Route: 058
  25. REMODULIN [Suspect]
     Active Substance: TREPROSTINIL
     Indication: PULMONARY ARTERIAL HYPERTENSION
     Dosage: UNK, CONTINUING
     Route: 041
     Dates: start: 20170822, end: 20170825
  26. OPSUMIT [Concomitant]
     Active Substance: MACITENTAN
     Indication: PULMONARY ARTERIAL HYPERTENSION
     Dosage: 10 MG, PER DAY
     Route: 048
     Dates: start: 201508
  27. HEPARINOID [Concomitant]
     Active Substance: CHONDROITIN SULFATE (BOVINE)
     Dosage: UNK
     Route: 062
  28. REMODULIN [Suspect]
     Active Substance: TREPROSTINIL
     Dosage: 0.024 ?G/KG, CONTINUING
     Route: 058
  29. ADCIRCA [Concomitant]
     Active Substance: TADALAFIL
     Indication: PULMONARY ARTERIAL HYPERTENSION
     Dosage: 60 MG, PER DAY
     Route: 048
     Dates: start: 201310
  30. HEPARINOID [Concomitant]
     Active Substance: CHONDROITIN SULFATE (BOVINE)
     Indication: PROPHYLAXIS
     Dosage: UNK
     Route: 065
     Dates: start: 20170413

REACTIONS (33)
  - Infusion site discolouration [Unknown]
  - Headache [Unknown]
  - Infusion site infection [Unknown]
  - Malaise [Not Recovered/Not Resolved]
  - Nausea [Recovered/Resolved]
  - Infusion site swelling [Recovered/Resolved]
  - Infusion site scar [Unknown]
  - Anaphylactic reaction [Recovered/Resolved]
  - Infusion site pain [Not Recovered/Not Resolved]
  - Allergy to animal [Unknown]
  - Dyspnoea [Recovered/Resolved]
  - Hot flush [Recovering/Resolving]
  - Infusion site induration [Recovered/Resolved]
  - Infusion site ulcer [Not Recovered/Not Resolved]
  - Infusion site pruritus [Recovered/Resolved]
  - Infusion site warmth [Recovered/Resolved]
  - Infusion site scar [Recovered/Resolved]
  - Gastroenteritis [Recovered/Resolved]
  - Infusion site discharge [Unknown]
  - Infusion site erythema [Recovered/Resolved]
  - Flushing [Not Recovered/Not Resolved]
  - Infusion site scab [Not Recovered/Not Resolved]
  - Infusion site pustule [Recovered/Resolved]
  - Infusion site erosion [Unknown]
  - Infusion site hypertrophy [Unknown]
  - Palpitations [Recovered/Resolved]
  - Infusion site haemorrhage [Recovered/Resolved]
  - Device issue [Unknown]
  - Infusion site dryness [Unknown]
  - Phlebitis [Recovered/Resolved]
  - Chest discomfort [Recovered/Resolved]
  - Eye pain [Recovering/Resolving]
  - Depressed mood [Unknown]

NARRATIVE: CASE EVENT DATE: 201611
